FAERS Safety Report 16478167 (Version 2)
Quarter: 2019Q4

REPORT INFORMATION
  Report Type: Spontaneous
  Country: US (occurrence: US)
  Receive Date: 20190626
  Receipt Date: 20191017
  Transmission Date: 20200122
  Serious: No
  Sender: FDA-Public Use
  Company Number: US-TEVA-2019-US-1058655

PATIENT
  Age: 8 Year
  Sex: Male

DRUGS (3)
  1. GUANFACINE ER [Suspect]
     Active Substance: GUANFACINE
     Dosage: 1 MILLIGRAM DAILY;
     Route: 048
  2. CONCERTA [Concomitant]
     Active Substance: METHYLPHENIDATE HYDROCHLORIDE
  3. GUANFACINE ER [Suspect]
     Active Substance: GUANFACINE
     Indication: ATTENTION DEFICIT/HYPERACTIVITY DISORDER
     Dates: start: 20190518, end: 20190604

REACTIONS (4)
  - Nightmare [Not Recovered/Not Resolved]
  - Therapy change [Unknown]
  - Somnolence [Not Recovered/Not Resolved]
  - Somnambulism [Not Recovered/Not Resolved]
